FAERS Safety Report 4548444-1 (Version None)
Quarter: 2004Q4

REPORT INFORMATION
  Report Type: 
  Country: None (occurrence: None)
  Receive Date: 20041227
  Receipt Date: 20041020
  Transmission Date: 20050328
  Serious: Yes (Hospitalization)
  Sender: FDA-Public Use
  Company Number: 04P-163-0278047-00

PATIENT
  Age: 58 Year
  Sex: Male

DRUGS (10)
  1. HUMIRA [Suspect]
     Indication: RHEUMATOID ARTHRITIS
     Dosage: 40 MG, 1 IN 1 WK, SUBCUTANEOUS
     Route: 058
     Dates: start: 20030301, end: 20040401
  2. HUMIRA [Suspect]
     Indication: RHEUMATOID ARTHRITIS
     Dosage: 40 MG, 1 IN 1 WK, SUBCUTANEOUS
     Route: 058
     Dates: start: 20040401, end: 20041013
  3. METHOTREXATE SODIUM [Concomitant]
  4. BUCINDOLOL HYDROCHLORIDE [Concomitant]
  5. RAMIPRIL [Concomitant]
  6. ROSIGLITAZONE MALEATE [Concomitant]
  7. ALENDRONATE SODIUM [Concomitant]
  8. CALCIUM GLUCONATE [Concomitant]
  9. PREDNISONE [Concomitant]
  10. RABEPRAZOLE SODIUM [Concomitant]

REACTIONS (2)
  - COCCIDIOIDOMYCOSIS [None]
  - PAIN IN EXTREMITY [None]
